FAERS Safety Report 6133689-X (Version None)
Quarter: 2009Q1

REPORT INFORMATION
  Report Type: 
  Country: None (occurrence: None)
  Receive Date: 20090326
  Receipt Date: 20090319
  Transmission Date: 20090719
  Serious: Yes (Other)
  Sender: FDA-Public Use
  Company Number: B0564886A

PATIENT
  Age: 8 Year
  Sex: Male
  Weight: 30 kg

DRUGS (5)
  1. RELENZA [Suspect]
     Indication: INFLUENZA
     Dosage: 10MG TWICE PER DAY
     Route: 055
     Dates: start: 20090225, end: 20090226
  2. ASVERIN [Concomitant]
     Indication: DRUG USE FOR UNKNOWN INDICATION
     Dosage: .7G TWICE PER DAY
     Route: 048
  3. PERIACTIN [Concomitant]
     Indication: DRUG USE FOR UNKNOWN INDICATION
     Dosage: .3G TWICE PER DAY
     Route: 048
  4. MUCODYNE [Concomitant]
     Indication: DRUG USE FOR UNKNOWN INDICATION
     Dosage: 1G TWICE PER DAY
     Route: 048
  5. BIOFERMIN [Concomitant]
     Indication: DRUG USE FOR UNKNOWN INDICATION
     Dosage: 1G TWICE PER DAY
     Route: 048

REACTIONS (6)
  - ABNORMAL BEHAVIOUR [None]
  - AGITATION [None]
  - HALLUCINATION, AUDITORY [None]
  - LOGORRHOEA [None]
  - MIDDLE INSOMNIA [None]
  - RESTLESS LEGS SYNDROME [None]
